FAERS Safety Report 11000089 (Version 1)
Quarter: 2015Q2

REPORT INFORMATION
  Report Type: Spontaneous
  Country: ES (occurrence: ES)
  Receive Date: 20150408
  Receipt Date: 20150408
  Transmission Date: 20150821
  Serious: Yes (Other)
  Sender: FDA-Public Use
  Company Number: ES-SA-2015SA042725

PATIENT
  Age: 30 Year
  Sex: Male

DRUGS (9)
  1. OXCARBAZEPINE. [Concomitant]
     Active Substance: OXCARBAZEPINE
     Route: 048
  2. FENTANYL. [Concomitant]
     Active Substance: FENTANYL
     Route: 048
  3. SULPIRIDE [Concomitant]
     Active Substance: SULPIRIDE
     Route: 048
  4. PETHIDINE HYDROCHLORIDE [Suspect]
     Active Substance: MEPERIDINE
     Route: 058
  5. BACLOFEN. [Concomitant]
     Active Substance: BACLOFEN
     Route: 048
  6. OMEPRAZOLE MAGNESIUM. [Concomitant]
     Active Substance: OMEPRAZOLE MAGNESIUM
     Route: 048
  7. DULOXETINE HYDROCHLORIDE. [Concomitant]
     Active Substance: DULOXETINE HYDROCHLORIDE
     Route: 048
  8. CLONAZEPAM. [Concomitant]
     Active Substance: CLONAZEPAM
     Route: 048
  9. ZOPICLONE [Concomitant]
     Active Substance: ZOPICLONE
     Route: 048

REACTIONS (9)
  - Skin ulcer [Recovering/Resolving]
  - Blood creatine phosphokinase increased [Recovering/Resolving]
  - Muscle contracture [Recovering/Resolving]
  - Drug abuser [Unknown]
  - Fibrosis [Recovering/Resolving]
  - Skin induration [Recovering/Resolving]
  - Joint stiffness [Recovering/Resolving]
  - Soft tissue necrosis [Recovering/Resolving]
  - Panniculitis lobular [Recovering/Resolving]
